FAERS Safety Report 24051649 (Version 1)
Quarter: 2024Q3

REPORT INFORMATION
  Report Type: Spontaneous
  Country: US (occurrence: US)
  Receive Date: 20240704
  Receipt Date: 20240704
  Transmission Date: 20241016
  Serious: No
  Sender: VERITY PHARMACEUTICALS
  Company Number: US-VER-202400193

PATIENT
  Sex: Male

DRUGS (2)
  1. TLANDO [Suspect]
     Active Substance: TESTOSTERONE UNDECANOATE
     Indication: Product used for unknown indication
     Dosage: 1 TAB DAILY
     Route: 065
  2. TLANDO [Suspect]
     Active Substance: TESTOSTERONE UNDECANOATE
     Indication: Product used for unknown indication
     Dosage: 2 TABS DAILY
     Route: 065

REACTIONS (1)
  - Intentional product use issue [Unknown]
